FAERS Safety Report 4362881-X (Version None)
Quarter: 2004Q2

REPORT INFORMATION
  Report Type: 
  Country: None (occurrence: None)
  Receive Date: 20040518
  Receipt Date: 20040430
  Transmission Date: 20050107
  Serious: Yes (Hospitalization, Other)
  Sender: FDA-Public Use
  Company Number: 2004023403

PATIENT
  Age: 15 Year
  Sex: Female

DRUGS (1)
  1. ZYRTEC [Suspect]
     Indication: RHINITIS ALLERGIC
     Dosage: 10 MG (DAILY), ORAL
     Route: 048
     Dates: start: 20040226, end: 20040228

REACTIONS (17)
  - BLOOD PRESSURE SYSTOLIC INCREASED [None]
  - CONVULSION [None]
  - ELECTROENCEPHALOGRAM ABNORMAL [None]
  - EYE HAEMORRHAGE [None]
  - FALL [None]
  - FOOD AVERSION [None]
  - HEADACHE [None]
  - LOSS OF CONSCIOUSNESS [None]
  - NASOPHARYNGITIS [None]
  - NAUSEA [None]
  - PALLOR [None]
  - PERSONALITY CHANGE [None]
  - SINUS TACHYCARDIA [None]
  - SOMNOLENCE [None]
  - SUPRAVENTRICULAR EXTRASYSTOLES [None]
  - SYNCOPE VASOVAGAL [None]
  - TREMOR [None]
